FAERS Safety Report 20564165 (Version 1)
Quarter: 2022Q1

REPORT INFORMATION
  Report Type: Spontaneous
  Country: JP (occurrence: JP)
  Receive Date: 20220308
  Receipt Date: 20220308
  Transmission Date: 20220423
  Serious: Yes (Other)
  Sender: FDA-Public Use
  Company Number: JP-SUN PHARMACEUTICAL INDUSTRIES LTD-2022RR-329015

PATIENT
  Age: 33 Year
  Sex: Female

DRUGS (5)
  1. ACYCLOVIR [Concomitant]
     Active Substance: ACYCLOVIR
     Indication: Oral herpes
     Dosage: UNK
     Dates: start: 201803
  2. PREDNISOLONE [Concomitant]
     Active Substance: PREDNISOLONE
     Indication: Dermatitis bullous
     Dosage: 20 MILLIGRAM, DAILY
     Route: 048
  3. IBUPROFEN [Suspect]
     Active Substance: IBUPROFEN
     Indication: Dysmenorrhoea
     Dosage: UNK
     Route: 065
  4. ASPIRIN [Suspect]
     Active Substance: ASPIRIN
     Indication: Dysmenorrhoea
     Dosage: UNK
     Route: 065
  5. LOXOPROFEN [Concomitant]
     Active Substance: LOXOPROFEN
     Indication: Dysmenorrhoea
     Dosage: UNK
     Route: 065

REACTIONS (1)
  - Fixed eruption [Unknown]
